FAERS Safety Report 18818261 (Version 1)
Quarter: 2021Q1

REPORT INFORMATION
  Report Type: Spontaneous
  Country: US (occurrence: US)
  Receive Date: 20210201
  Receipt Date: 20210201
  Transmission Date: 20210419
  Serious: No
  Sender: FDA-Public Use
  Company Number: US-BAYER-2021-043254

PATIENT
  Sex: Female

DRUGS (2)
  1. ALEVE [Suspect]
     Active Substance: NAPROXEN SODIUM
     Indication: FIBROMYALGIA
     Dosage: UNK
     Route: 048
  2. ALEVE [Suspect]
     Active Substance: NAPROXEN SODIUM
     Indication: NEURALGIA

REACTIONS (1)
  - Drug ineffective [Unknown]
